FAERS Safety Report 5025068-3 (Version None)
Quarter: 2006Q2

REPORT INFORMATION
  Report Type: 
  Country: None (occurrence: None)
  Receive Date: 20060607
  Receipt Date: 20060518
  Transmission Date: 20061013
  Serious: Yes (Other)
  Sender: FDA-Public Use
  Company Number: US200604003052

PATIENT
  Age: 63 Year
  Sex: Female
  Weight: 81.2 kg

DRUGS (2)
  1. FORTEO [Suspect]
     Indication: OSTEOPOROSIS
     Dosage: 20 UG, DAILY (1/D)
     Dates: start: 20041201
  2. FORTEO PEN (FORTEO PEN) [Concomitant]

REACTIONS (4)
  - BREAST CANCER STAGE I [None]
  - DRUG INTOLERANCE [None]
  - FALL [None]
  - SPINAL FRACTURE [None]
